FAERS Safety Report 10450028 (Version 1)
Quarter: 2014Q3

REPORT INFORMATION
  Report Type: Spontaneous
  Country: DE (occurrence: DE)
  Receive Date: 20140912
  Receipt Date: 20140912
  Transmission Date: 20150326
  Serious: Yes (Hospitalization)
  Sender: FDA-Public Use
  Company Number: DE-WATSON-2014-19659

PATIENT
  Age: 35 Year
  Sex: Male
  Weight: 90 kg

DRUGS (4)
  1. ARIPIPRAZOLE (UNKNOWN) [Suspect]
     Active Substance: ARIPIPRAZOLE
     Indication: SCHIZOPHRENIA, PARANOID TYPE
     Dosage: 10 MG, UNK
     Route: 048
     Dates: start: 20140715
  2. RISPERIDONE (UNKNOWN) [Suspect]
     Active Substance: RISPERIDONE
     Dosage: 3 MG, UNK
     Route: 048
     Dates: start: 20140614
  3. RISPERIDONE (UNKNOWN) [Suspect]
     Active Substance: RISPERIDONE
     Indication: SCHIZOPHRENIA, PARANOID TYPE
     Dosage: 4 UNK, UNK
     Route: 048
     Dates: start: 20140630, end: 20140804
  4. AMLODIPIN                          /00972401/ [Concomitant]
     Active Substance: AMLODIPINE BESYLATE
     Indication: HYPERTENSION
     Dosage: 5 MG, UNK
     Route: 048
     Dates: start: 20140620

REACTIONS (1)
  - Pulmonary embolism [Not Recovered/Not Resolved]

NARRATIVE: CASE EVENT DATE: 20140725
